FAERS Safety Report 9261563 (Version 1)
Quarter: 2013Q2

REPORT INFORMATION
  Report Type: Spontaneous
  Country: IT (occurrence: IT)
  Receive Date: 20130429
  Receipt Date: 20130429
  Transmission Date: 20140414
  Serious: Yes (Other)
  Sender: FDA-Public Use
  Company Number: IT-TEVA-400288ISR

PATIENT
  Age: 84 Year
  Sex: Female

DRUGS (2)
  1. CITALOPRAM [Suspect]
     Dosage: 30 GTT DAILY;
     Route: 048
     Dates: start: 20130320, end: 20130320
  2. CARDIOASPIRIN 100 MG [Concomitant]
     Dosage: GASTRORESISTANT TABLETS

REACTIONS (3)
  - Drug abuse [Recovering/Resolving]
  - Sopor [Recovering/Resolving]
  - Confusional state [Recovering/Resolving]
